FAERS Safety Report 5744293-7 (Version None)
Quarter: 2008Q2

REPORT INFORMATION
  Report Type: 
  Country: None (occurrence: None)
  Receive Date: 20080520
  Receipt Date: 20080513
  Transmission Date: 20081010
  Serious: Yes (Hospitalization)
  Sender: FDA-Public Use
  Company Number: CA-WYE-H03630008

PATIENT
  Sex: Male
  Weight: 79 kg

DRUGS (12)
  1. TACROLIMUS [Suspect]
     Indication: PROPHYLAXIS AGAINST TRANSPLANT REJECTION
     Dosage: DOSE AND FREQUENCY NOT SPECIFIED
     Route: 065
     Dates: end: 20080307
  2. PANTOPRAZOLE SODIUM [Concomitant]
     Indication: DYSPEPSIA
     Route: 048
     Dates: start: 20060919, end: 20080408
  3. PANTOPRAZOLE SODIUM [Concomitant]
     Route: 048
     Dates: start: 20080101
  4. ALDACTONE [Concomitant]
     Indication: FLUID RETENTION
     Route: 048
     Dates: start: 20080409
  5. VANCOMYCIN [Concomitant]
     Indication: CLOSTRIDIAL INFECTION
     Route: 048
     Dates: start: 20080312, end: 20080430
  6. PEGINTERFERON ALFA-2B [Suspect]
     Indication: HEPATITIS C
     Dosage: 180 MG / WEEK
     Route: 058
     Dates: start: 20080308
  7. PEGINTERFERON ALFA-2B [Suspect]
     Dosage: 135 MG/WEEK
     Route: 058
     Dates: start: 20080401
  8. RIBAVIRIN [Suspect]
     Indication: HEPATITIS C
     Route: 048
     Dates: start: 20080309
  9. SIROLIMUS [Suspect]
     Indication: PROPHYLAXIS AGAINST TRANSPLANT REJECTION
     Dosage: DOSE AND FREQUENCY NOT SPECIFIED
     Route: 065
     Dates: start: 20080118
  10. SIROLIMUS [Suspect]
     Route: 048
     Dates: start: 20080101
  11. FUROSEMIDE [Concomitant]
     Indication: FLUID RETENTION
     Route: 048
     Dates: start: 20080317, end: 20080428
  12. FUROSEMIDE [Concomitant]
     Indication: ASCITES

REACTIONS (6)
  - ANAEMIA [None]
  - BLOOD ALKALINE PHOSPHATASE INCREASED [None]
  - GASTROINTESTINAL HAEMORRHAGE [None]
  - MELAENA [None]
  - THROMBOCYTOPENIA [None]
  - WHITE BLOOD CELL COUNT DECREASED [None]
